FAERS Safety Report 5236157-2 (Version None)
Quarter: 2007Q1

REPORT INFORMATION
  Report Type: 
  Country: None (occurrence: None)
  Receive Date: 20070212
  Receipt Date: 20070205
  Transmission Date: 20070707
  Serious: Yes (Hospitalization, Other)
  Sender: FDA-Public Use
  Company Number: US-SHR-US-2007-004350

PATIENT
  Age: 42 Year
  Sex: Female
  Weight: 66.2 kg

DRUGS (2)
  1. CLIMARA [Suspect]
     Dosage: .1 MG/D, CONT
     Route: 062
     Dates: start: 20060101, end: 20070124
  2. CITALOPRAM HYDROBROMIDE [Concomitant]
     Dosage: 40 MG/D, UNK

REACTIONS (15)
  - ABDOMINAL DISTENSION [None]
  - ALOPECIA [None]
  - ANXIETY [None]
  - HYPERTENSION [None]
  - LOSS OF LIBIDO [None]
  - NAUSEA [None]
  - PAIN IN EXTREMITY [None]
  - RASH MACULAR [None]
  - RASH PAPULAR [None]
  - RENAL FAILURE [None]
  - SKIN DISORDER [None]
  - SKIN INFECTION [None]
  - THROMBOSIS [None]
  - VOMITING [None]
  - WEIGHT DECREASED [None]
